FAERS Safety Report 4317060-9 (Version None)
Quarter: 2004Q1

REPORT INFORMATION
  Report Type: 
  Country: None (occurrence: None)
  Receive Date: 20040312
  Receipt Date: 20040303
  Transmission Date: 20041129
  Serious: Yes (Life-Threatening, Hospitalization)
  Sender: FDA-Public Use
  Company Number: 200051448BVD

PATIENT
  Age: 47 Year
  Sex: Male

DRUGS (2)
  1. AVELOX [Suspect]
     Indication: PNEUMONIA
     Dosage: 400 MG, TOTAL DAILY, ORAL
     Route: 048
     Dates: start: 20000328
  2. MARCUMAR [Concomitant]

REACTIONS (3)
  - ASTHMA [None]
  - LOCALISED OEDEMA [None]
  - SHOCK [None]
